FAERS Safety Report 5387979-9 (Version None)
Quarter: 2007Q3

REPORT INFORMATION
  Report Type: 
  Country: None (occurrence: None)
  Receive Date: 20070716
  Receipt Date: 20061018
  Transmission Date: 20080115
  Serious: No
  Sender: FDA-Public Use
  Company Number: A0623865A

PATIENT
  Age: 41 Year
  Sex: Female

DRUGS (2)
  1. NICORETTE (MINT) [Suspect]
     Dates: start: 20060915
  2. NICORETTE [Suspect]
     Dates: start: 20060915

REACTIONS (1)
  - PAIN IN JAW [None]
